FAERS Safety Report 4865904-4 (Version None)
Quarter: 2005Q4

REPORT INFORMATION
  Report Type: 
  Country: None (occurrence: None)
  Receive Date: 20051223
  Receipt Date: 20051215
  Transmission Date: 20060501
  Serious: Yes (Other)
  Sender: FDA-Public Use
  Company Number: PHBS2005BR18530

PATIENT
  Age: 26 Year
  Sex: Female

DRUGS (1)
  1. SYNTOCINON [Suspect]
     Dosage: UNK, ONCE/SINGLE
     Route: 045
     Dates: start: 20051214, end: 20051214

REACTIONS (2)
  - EPISTAXIS [None]
  - MEDICATION ERROR [None]
